FAERS Safety Report 8377761-2 (Version None)
Quarter: 2012Q2

REPORT INFORMATION
  Report Type: 
  Country: None (occurrence: None)
  Receive Date: 20120522
  Receipt Date: 20120509
  Transmission Date: 20120825
  Serious: No
  Sender: FDA-Public Use
  Company Number: US-ASTRAZENECA-2012SE20398

PATIENT
  Age: 45 Year
  Sex: Female

DRUGS (1)
  1. RHINOCORT [Suspect]
     Indication: RHINITIS ALLERGIC
     Dosage: 32 MCG, TWO SPRAYS DAILY
     Route: 045
     Dates: start: 20120326

REACTIONS (2)
  - INTENTIONAL DRUG MISUSE [None]
  - SINUSITIS [None]
